FAERS Safety Report 17531497 (Version 1)
Quarter: 2020Q1

REPORT INFORMATION
  Report Type: Spontaneous
  Country: US (occurrence: US)
  Receive Date: 20200311
  Receipt Date: 20200311
  Transmission Date: 20200409
  Serious: No
  Sender: FDA-Public Use
  Company Number: US-SA-2020SA058172

PATIENT
  Sex: Female

DRUGS (15)
  1. NABUMETONE. [Concomitant]
     Active Substance: NABUMETONE
  2. OMEPRAZOLE. [Concomitant]
     Active Substance: OMEPRAZOLE
  3. METHOTREXATE. [Concomitant]
     Active Substance: METHOTREXATE
  4. KEVZARA [Suspect]
     Active Substance: SARILUMAB
     Indication: PRODUCT USED FOR UNKNOWN INDICATION
     Dosage: 200 MG, QOW
     Route: 058
  5. SERTRALINE HCL [Concomitant]
     Active Substance: SERTRALINE HYDROCHLORIDE
  6. METOPROLOL SUCCINATE. [Concomitant]
     Active Substance: METOPROLOL SUCCINATE
  7. PERCOCET [Concomitant]
     Active Substance: ACETAMINOPHEN\OXYCODONE HYDROCHLORIDE
  8. PROAIR HFA [Concomitant]
     Active Substance: ALBUTEROL SULFATE
     Dosage: AEROSOL
  9. HUMIRA [Concomitant]
     Active Substance: ADALIMUMAB
     Dosage: HUMIRA KIT 40 MG/0.8 ML
  10. IBUPROFEN. [Concomitant]
     Active Substance: IBUPROFEN
  11. LISINOPRIL. [Concomitant]
     Active Substance: LISINOPRIL
  12. LEFLUNOMIDE. [Concomitant]
     Active Substance: LEFLUNOMIDE
  13. MORPHINE SULFATE. [Concomitant]
     Active Substance: MORPHINE SULFATE
  14. PREDNISONE. [Concomitant]
     Active Substance: PREDNISONE
  15. FLUOXETINE [Concomitant]
     Active Substance: FLUOXETINE HYDROCHLORIDE

REACTIONS (1)
  - Animal bite [Recovered/Resolved]
